FAERS Safety Report 25001966 (Version 5)
Quarter: 2025Q4

REPORT INFORMATION
  Report Type: Spontaneous
  Country: US (occurrence: US)
  Receive Date: 20250224
  Receipt Date: 20251223
  Transmission Date: 20260117
  Serious: Yes (Other)
  Sender: CSL BEHRING
  Company Number: US-BEH-2025196217

PATIENT
  Age: 6 Year
  Sex: Male

DRUGS (17)
  1. IDELVION [Suspect]
     Active Substance: COAGULATION FACTOR IX RECOMBINANT HUMAN
     Indication: Factor IX deficiency
     Dosage: 1000 IU, EVERY14 DAYS
     Route: 042
     Dates: start: 202007
  2. IDELVION [Suspect]
     Active Substance: COAGULATION FACTOR IX RECOMBINANT HUMAN
     Indication: Factor IX deficiency
     Dosage: 1000 IU, EVERY14 DAYS
     Route: 042
     Dates: start: 202007
  3. IDELVION [Suspect]
     Active Substance: COAGULATION FACTOR IX RECOMBINANT HUMAN
     Dosage: 650 IU, EVERY 14 DAYS
     Route: 042
     Dates: start: 202007
  4. IDELVION [Suspect]
     Active Substance: COAGULATION FACTOR IX RECOMBINANT HUMAN
     Dosage: 650 IU, EVERY 14 DAYS
     Route: 042
     Dates: start: 202007
  5. IDELVION [Suspect]
     Active Substance: COAGULATION FACTOR IX RECOMBINANT HUMAN
     Dosage: 1650 IU, EVERY 14 DAYS/ PRN (STRENGTH: 500)
     Route: 042
     Dates: start: 202007
  6. IDELVION [Suspect]
     Active Substance: COAGULATION FACTOR IX RECOMBINANT HUMAN
     Dosage: 1650 IU, EVERY 14 DAYS/ PRN (STRENGTH: 500)
     Route: 042
     Dates: start: 202007
  7. IDELVION [Suspect]
     Active Substance: COAGULATION FACTOR IX RECOMBINANT HUMAN
     Dosage: 1650 IU, EVERY 14 DAYS/ PRN (STRENGTH: 1000)
     Route: 042
     Dates: start: 202007
  8. IDELVION [Suspect]
     Active Substance: COAGULATION FACTOR IX RECOMBINANT HUMAN
     Dosage: 1650 IU, EVERY 14 DAYS/ PRN (STRENGTH: 1000)
     Route: 042
     Dates: start: 202007
  9. IDELVION [Suspect]
     Active Substance: COAGULATION FACTOR IX RECOMBINANT HUMAN
     Dosage: 350 IU, QOW(EVERY 14 DAYS)
     Route: 042
     Dates: start: 202007
  10. IDELVION [Suspect]
     Active Substance: COAGULATION FACTOR IX RECOMBINANT HUMAN
     Dosage: 350 IU, QOW(EVERY 14 DAYS)
     Route: 042
     Dates: start: 202007
  11. IDELVION [Suspect]
     Active Substance: COAGULATION FACTOR IX RECOMBINANT HUMAN
     Dosage: 500 IU, QOW(EVERY 14 DAYS)
     Route: 042
     Dates: start: 202007
  12. IDELVION [Suspect]
     Active Substance: COAGULATION FACTOR IX RECOMBINANT HUMAN
     Dosage: 500 IU, QOW(EVERY 14 DAYS)
     Route: 042
     Dates: start: 202007
  13. IDELVION [Suspect]
     Active Substance: COAGULATION FACTOR IX RECOMBINANT HUMAN
     Dosage: 1850 QOW(EVERY 14 DAYS)
     Route: 042
     Dates: start: 202007
  14. IDELVION [Suspect]
     Active Substance: COAGULATION FACTOR IX RECOMBINANT HUMAN
     Dosage: 1850 QOW(EVERY 14 DAYS)
     Route: 042
     Dates: start: 202007
  15. AMINOCAPROIC ACID [Concomitant]
     Active Substance: AMINOCAPROIC ACID
     Dosage: SOLN
     Route: 048
  16. SODIUM CHLORIDE [Concomitant]
     Active Substance: SODIUM CHLORIDE
     Dosage: POSIFLUSH 10 ML
  17. LIDOCAINE AND PRILOCAINE [Concomitant]
     Active Substance: LIDOCAINE\PRILOCAINE
     Dosage: UNK

REACTIONS (7)
  - Muscle haemorrhage [Unknown]
  - Haemarthrosis [Not Recovered/Not Resolved]
  - Haemorrhage [Unknown]
  - Haemorrhage [Unknown]
  - Haemorrhage [Unknown]
  - Contusion [Unknown]
  - Gait disturbance [Unknown]

NARRATIVE: CASE EVENT DATE: 20250209
